FAERS Safety Report 8609744-9 (Version None)
Quarter: 2012Q3

REPORT INFORMATION
  Report Type: 
  Country: None (occurrence: None)
  Receive Date: 20120821
  Receipt Date: 20120816
  Transmission Date: 20120928
  Serious: Yes (Other)
  Sender: FDA-Public Use
  Company Number: CA-ABBOTT-11P-028-0865935-00

PATIENT
  Sex: Female
  Weight: 59.02 kg

DRUGS (10)
  1. CITALOPRAM HYDROBROMIDE [Concomitant]
     Indication: NERVOUSNESS
     Route: 048
  2. HUMIRA [Suspect]
     Indication: CROHN'S DISEASE
     Route: 058
     Dates: start: 20110811
  3. HUMIRA [Suspect]
     Route: 058
     Dates: start: 20120802
  4. METHOTREXATE [Suspect]
     Indication: CROHN'S DISEASE
     Dates: start: 20120101
  5. METHOTREXATE [Suspect]
     Dosage: WEEKLY
     Route: 058
  6. HUMIRA [Suspect]
     Route: 058
     Dates: start: 20120809
  7. FOLIC ACID [Concomitant]
     Indication: CROHN'S DISEASE
     Dosage: WEEKLY
     Route: 048
  8. CALCITE [Concomitant]
     Indication: MINERAL SUPPLEMENTATION
  9. APO PANTOPRAZOLE [Concomitant]
     Indication: GASTROOESOPHAGEAL REFLUX DISEASE
     Route: 048
  10. LOPERAMIDE [Concomitant]
     Indication: DIARRHOEA
     Route: 051

REACTIONS (5)
  - DEHYDRATION [None]
  - GASTROINTESTINAL INFLAMMATION [None]
  - GASTROINTESTINAL INFECTION [None]
  - FATIGUE [None]
  - INCORRECT DRUG ADMINISTRATION DURATION [None]
